FAERS Safety Report 15784089 (Version 1)
Quarter: 2019Q1

REPORT INFORMATION
  Report Type: Spontaneous
  Country: NL (occurrence: NL)
  Receive Date: 20190103
  Receipt Date: 20190103
  Transmission Date: 20190417
  Serious: Yes (Other)
  Sender: FDA-Public Use
  Company Number: NL-BIOGEN-2018BI00677074

PATIENT
  Age: 40 Year
  Sex: Female

DRUGS (1)
  1. TYSABRI [Suspect]
     Active Substance: NATALIZUMAB
     Indication: MULTIPLE SCLEROSIS
     Dosage: 1X/ 4 WEKEN 300 MG
     Route: 065
     Dates: start: 201711

REACTIONS (1)
  - Cervical dysplasia [Recovered/Resolved]

NARRATIVE: CASE EVENT DATE: 201809
